FAERS Safety Report 8790701 (Version 1)
Quarter: 2012Q4

REPORT INFORMATION
  Report Type: Spontaneous
  Country: US (occurrence: None)
  Receive Date: 20120912
  Receipt Date: 20120912
  Transmission Date: 20130627
  Serious: Yes (Hospitalization)
  Sender: FDA-Public Use
  Company Number: None

PATIENT
  Age: 77 Year
  Sex: Male
  Weight: 98.6 kg

DRUGS (2)
  1. WARFARIN [Suspect]
     Indication: ATRIAL FIBRILLATION
     Route: 048
     Dates: start: 19960619, end: 20120609
  2. CAPECITABINE [Suspect]
     Indication: CANCER
     Route: 048

REACTIONS (4)
  - Bleeding varicose vein [None]
  - International normalised ratio increased [None]
  - Gastric haemorrhage [None]
  - Cholangiocarcinoma [None]
